FAERS Safety Report 17107476 (Version 2)
Quarter: 2020Q1

REPORT INFORMATION
  Report Type: Report from Study
  Country: CA (occurrence: CA)
  Receive Date: 20191204
  Receipt Date: 20200326
  Transmission Date: 20200409
  Serious: Yes (Other)
  Sender: FDA-Public Use
  Company Number: CA-UCBSA-2019031527

PATIENT
  Age: 37 Year
  Sex: Female
  Weight: 97 kg

DRUGS (9)
  1. BUTRANS [Concomitant]
     Active Substance: BUPRENORPHINE
     Indication: PRODUCT USED FOR UNKNOWN INDICATION
  2. DULOXETINE. [Concomitant]
     Active Substance: DULOXETINE
     Indication: PRODUCT USED FOR UNKNOWN INDICATION
  3. CERTOLIZUMAB PEGOL AUTOCLICKS [Suspect]
     Active Substance: CERTOLIZUMAB PEGOL
     Indication: ANKYLOSING SPONDYLITIS
     Dosage: 200 MILLIGRAM, EV 2 WEEKS(QOW)
     Route: 058
     Dates: start: 20180811
  4. CERTOLIZUMAB PEGOL AUTOCLICKS [Suspect]
     Active Substance: CERTOLIZUMAB PEGOL
     Dosage: 200 MILLIGRAM, EV 2 WEEKS(QOW)
     Route: 058
     Dates: start: 20190816
  5. APO-RANITIDINE [Concomitant]
     Active Substance: RANITIDINE
     Indication: PRODUCT USED FOR UNKNOWN INDICATION
  6. DEXILANT [Concomitant]
     Active Substance: DEXLANSOPRAZOLE
     Indication: PRODUCT USED FOR UNKNOWN INDICATION
  7. CERTOLIZUMAB PEGOL AUTOCLICKS [Suspect]
     Active Substance: CERTOLIZUMAB PEGOL
     Dosage: 400 MILLIGRAM, EV 2 WEEKS(QOW)
     Route: 058
     Dates: start: 20180927, end: 20190731
  8. CERTOLIZUMAB PEGOL AUTOCLICKS [Suspect]
     Active Substance: CERTOLIZUMAB PEGOL
     Dosage: 200 MILLIGRAM, EV 2 WEEKS(QOW)
     Route: 058
     Dates: start: 20190816, end: 20200313
  9. DICLOFENAC [Concomitant]
     Active Substance: DICLOFENAC
     Indication: PRODUCT USED FOR UNKNOWN INDICATION

REACTIONS (6)
  - Malaise [Unknown]
  - Pharyngitis streptococcal [Recovered/Resolved]
  - Pain [Unknown]
  - Streptococcal infection [Recovered/Resolved]
  - Drug ineffective [Unknown]
  - Ear infection [Recovered/Resolved]

NARRATIVE: CASE EVENT DATE: 20190801
